FAERS Safety Report 6576578-9 (Version None)
Quarter: 2010Q1

REPORT INFORMATION
  Report Type: 
  Country: None (occurrence: None)
  Receive Date: 20100210
  Receipt Date: 20100120
  Transmission Date: 20100710
  Serious: Yes (Hospitalization, Other)
  Sender: FDA-Public Use
  Company Number: PHEH2010US01112

PATIENT
  Sex: Male

DRUGS (13)
  1. GLEEVEC [Suspect]
     Indication: CHRONIC MYELOID LEUKAEMIA
     Dosage: 400 MG, BID
     Route: 048
     Dates: start: 20030101, end: 20070802
  2. GLEEVEC [Suspect]
     Dosage: 400 MG, BID
     Route: 048
     Dates: start: 20070814
  3. CITALOPRAM [Suspect]
     Dosage: 40 MG, BID
     Route: 048
  4. SPRYCEL [Suspect]
     Dosage: UNK, UNK
     Route: 065
     Dates: start: 20070802, end: 20070814
  5. LEVOXYL [Concomitant]
     Dosage: UNK UNK
     Route: 065
  6. GLIPIZIDE [Concomitant]
     Dosage: UNK, UNK
     Route: 065
  7. TRIAMTERENE AND HYDROCHLOROTHIAZIDE [Concomitant]
     Dosage: UNK, UNK
     Route: 065
  8. JANUVIA [Concomitant]
     Dosage: UNK, UNK
     Route: 065
  9. PRILOSEC [Concomitant]
     Dosage: UNK, UNK
     Route: 065
  10. LYRICA [Concomitant]
     Dosage: UNK, UNK
     Route: 065
  11. LANTUS [Concomitant]
     Dosage: UNK, UNK
     Route: 065
  12. M.V.I. [Concomitant]
     Dosage: UNK, UNK
     Route: 065
  13. OSTEOFLEX /IND/ [Concomitant]
     Dosage: UNK, UNK
     Route: 065

REACTIONS (8)
  - DYSPNOEA [None]
  - FATIGUE [None]
  - HYPOTHYROIDISM [None]
  - NAUSEA [None]
  - PAIN [None]
  - PNEUMONIA [None]
  - THYROID CANCER [None]
  - VOMITING [None]
